FAERS Safety Report 14346214 (Version 1)
Quarter: 2018Q1

REPORT INFORMATION
  Report Type: Spontaneous
  Country: GB (occurrence: None)
  Receive Date: 20180102
  Receipt Date: 20180102
  Transmission Date: 20180509
  Serious: Yes (Other)
  Sender: FDA-Public Use
  Company Number: GB-FL-2017-003662

PATIENT
  Age: 26 Year
  Sex: Female

DRUGS (1)
  1. ILUVIEN [Suspect]
     Active Substance: FLUOCINOLONE ACETONIDE
     Indication: DIABETIC RETINAL OEDEMA
     Dosage: 0.25 MG, QD, LEFT, INTRAOCULAR
     Route: 031
     Dates: start: 20170615

REACTIONS (3)
  - Intraocular pressure increased [None]
  - Off label use [None]
  - Angle closure glaucoma [None]

NARRATIVE: CASE EVENT DATE: 20170620
